FAERS Safety Report 9738441 (Version 5)
Quarter: 2014Q2

REPORT INFORMATION
  Report Type: Report from Study
  Country: CA (occurrence: CA)
  Receive Date: 20131208
  Receipt Date: 20140402
  Transmission Date: 20141212
  Serious: Yes (Hospitalization)
  Sender: FDA-Public Use
  Company Number: CA-ROCHE-1312135

PATIENT
  Age: 60 Year
  Sex: Male

DRUGS (4)
  1. AVASTIN [Suspect]
     Indication: GLIOBLASTOMA
     Route: 042
     Dates: start: 20131115, end: 20140304
  2. CLONAZEPAM [Concomitant]
  3. LAMOTRIGINE [Concomitant]
  4. SPIRIVA [Concomitant]

REACTIONS (6)
  - Confusional state [Unknown]
  - Fall [Unknown]
  - Gait disturbance [Unknown]
  - Platelet count decreased [Unknown]
  - Blood pressure increased [Unknown]
  - Malignant neoplasm progression [Unknown]
